FAERS Safety Report 15586817 (Version 4)
Quarter: 2019Q1

REPORT INFORMATION
  Report Type: Report from Study
  Country: CA (occurrence: CA)
  Receive Date: 20181105
  Receipt Date: 20190103
  Transmission Date: 20190417
  Serious: Yes (Hospitalization, Other)
  Sender: FDA-Public Use
  Company Number: CA-BRISTOL-MYERS SQUIBB COMPANY-BMS-2018-090551

PATIENT
  Sex: Female

DRUGS (1)
  1. ABATACEPT [Suspect]
     Active Substance: ABATACEPT
     Indication: PRODUCT USED FOR UNKNOWN INDICATION
     Dosage: 125 MG, QWK
     Route: 058
     Dates: start: 20180713, end: 20180921

REACTIONS (11)
  - Clostridium difficile infection [Unknown]
  - Malaise [Not Recovered/Not Resolved]
  - Abdominal distension [Unknown]
  - Liver disorder [Not Recovered/Not Resolved]
  - Vomiting [Unknown]
  - Chills [Unknown]
  - Back pain [Unknown]
  - Wound [Unknown]
  - Localised infection [Not Recovered/Not Resolved]
  - Eating disorder [Unknown]
  - Diarrhoea [Recovering/Resolving]
